FAERS Safety Report 25772394 (Version 1)
Quarter: 2025Q3

REPORT INFORMATION
  Report Type: Spontaneous
  Country: EU (occurrence: EU)
  Receive Date: 20250908
  Receipt Date: 20250908
  Transmission Date: 20251021
  Serious: Yes (Death, Hospitalization)
  Sender: MYLAN
  Company Number: EU-MYLANLABS-2025M1074406

PATIENT
  Age: 61 Year
  Sex: Female

DRUGS (20)
  1. ACETAMINOPHEN [Suspect]
     Active Substance: ACETAMINOPHEN
     Indication: Product used for unknown indication
  2. ACETAMINOPHEN [Suspect]
     Active Substance: ACETAMINOPHEN
     Route: 048
  3. ACETAMINOPHEN [Suspect]
     Active Substance: ACETAMINOPHEN
     Route: 048
  4. ACETAMINOPHEN [Suspect]
     Active Substance: ACETAMINOPHEN
  5. ACETYLCYSTEINE [Suspect]
     Active Substance: ACETYLCYSTEINE
     Indication: Toxicity to various agents
  6. ACETYLCYSTEINE [Suspect]
     Active Substance: ACETYLCYSTEINE
     Route: 065
  7. ACETYLCYSTEINE [Suspect]
     Active Substance: ACETYLCYSTEINE
     Route: 065
  8. ACETYLCYSTEINE [Suspect]
     Active Substance: ACETYLCYSTEINE
  9. CEFUROXIME [Concomitant]
     Active Substance: CEFUROXIME
     Indication: Product used for unknown indication
  10. CEFUROXIME [Concomitant]
     Active Substance: CEFUROXIME
     Route: 065
  11. CEFUROXIME [Concomitant]
     Active Substance: CEFUROXIME
     Route: 065
  12. CEFUROXIME [Concomitant]
     Active Substance: CEFUROXIME
  13. FLUINDIONE [Concomitant]
     Active Substance: FLUINDIONE
     Indication: Product used for unknown indication
  14. FLUINDIONE [Concomitant]
     Active Substance: FLUINDIONE
     Route: 065
  15. FLUINDIONE [Concomitant]
     Active Substance: FLUINDIONE
     Route: 065
  16. FLUINDIONE [Concomitant]
     Active Substance: FLUINDIONE
  17. IRON [Concomitant]
     Active Substance: IRON
     Indication: Mineral supplementation
  18. IRON [Concomitant]
     Active Substance: IRON
     Route: 065
  19. IRON [Concomitant]
     Active Substance: IRON
     Route: 065
  20. IRON [Concomitant]
     Active Substance: IRON

REACTIONS (5)
  - Bezoar [Fatal]
  - Toxicity to various agents [Fatal]
  - Intentional overdose [Fatal]
  - Completed suicide [Fatal]
  - Drug ineffective [Fatal]
